FAERS Safety Report 20389214 (Version 1)
Quarter: 2022Q1

REPORT INFORMATION
  Report Type: Spontaneous
  Country: US (occurrence: US)
  Receive Date: 20220128
  Receipt Date: 20220128
  Transmission Date: 20220423
  Serious: No
  Sender: FDA-Public Use
  Company Number: US-ALLERGAN-2108028US

PATIENT
  Sex: Female

DRUGS (4)
  1. BOTOX COSMETIC [Suspect]
     Active Substance: ONABOTULINUMTOXINA
     Indication: Skin wrinkling
     Dosage: UNK UNK, SINGLE
  2. MULTIVITAMIN                       /00097801/ [Concomitant]
     Indication: Nutritional supplementation
  3. COLLAGEN [Concomitant]
     Active Substance: COLLAGEN
     Indication: Nutritional supplementation
  4. VITAMIN D3 [Concomitant]
     Active Substance: CHOLECALCIFEROL
     Indication: Nutritional supplementation

REACTIONS (1)
  - Therapeutic response decreased [Unknown]
